FAERS Safety Report 14320470 (Version 2)
Quarter: 2018Q1

REPORT INFORMATION
  Report Type: Report from Study
  Country: US (occurrence: US)
  Receive Date: 20171222
  Receipt Date: 20180102
  Transmission Date: 20180509
  Serious: Yes (Hospitalization)
  Sender: FDA-Public Use
  Company Number: US-ACTELION-A-NJ2017-164507

PATIENT
  Age: 65 Year
  Sex: Female
  Weight: 63.49 kg

DRUGS (4)
  1. LETAIRIS [Concomitant]
     Active Substance: AMBRISENTAN
  2. VELETRI [Suspect]
     Active Substance: EPOPROSTENOL
     Dosage: 19 NG/KG, PER MIN
     Route: 042
  3. VELETRI [Suspect]
     Active Substance: EPOPROSTENOL
     Indication: PULMONARY HYPERTENSION
     Dosage: 15 NG/KG, PER MIN
     Route: 042
  4. UPTRAVI [Suspect]
     Active Substance: SELEXIPAG
     Indication: PULMONARY HYPERTENSION
     Dosage: 800 MCG, BID
     Route: 048

REACTIONS (10)
  - Syncope [Unknown]
  - Catheter site haemorrhage [Unknown]
  - Breath sounds abnormal [Unknown]
  - Anxiety [Recovered/Resolved]
  - Condition aggravated [Unknown]
  - Exercise tolerance decreased [Unknown]
  - Bowel movement irregularity [Unknown]
  - Dyspnoea exertional [Not Recovered/Not Resolved]
  - Device leakage [Unknown]
  - Oedema peripheral [Unknown]
